FAERS Safety Report 6966171-8 (Version None)
Quarter: 2010Q3

REPORT INFORMATION
  Report Type: 
  Country: None (occurrence: None)
  Receive Date: 20100903
  Receipt Date: 20100825
  Transmission Date: 20110219
  Serious: Yes (Life-Threatening, Hospitalization)
  Sender: FDA-Public Use
  Company Number: GXKR2010ZA09644

PATIENT
  Age: 50 Year
  Sex: Male

DRUGS (1)
  1. VERAHEXAL (NGX) [Suspect]
     Dosage: 240 MG, 5QD2SDO
     Route: 048
     Dates: start: 20090101, end: 20090101

REACTIONS (4)
  - DEPRESSION [None]
  - INTENSIVE CARE [None]
  - MALAISE [None]
  - WRONG DRUG ADMINISTERED [None]
